FAERS Safety Report 12937691 (Version 1)
Quarter: 2016Q4

REPORT INFORMATION
  Report Type: Report from Study
  Country: IT (occurrence: IT)
  Receive Date: 20161114
  Receipt Date: 20161114
  Transmission Date: 20170207
  Serious: Yes (Other)
  Sender: FDA-Public Use
  Company Number: IT-JNJFOC-20161110787

PATIENT
  Age: 81 Year
  Sex: Female

DRUGS (1)
  1. IMBRUVICA [Suspect]
     Active Substance: IBRUTINIB
     Indication: CHRONIC LYMPHOCYTIC LEUKAEMIA
     Route: 048
     Dates: end: 20161107

REACTIONS (6)
  - Diarrhoea [Unknown]
  - Fatigue [Unknown]
  - Petechiae [Unknown]
  - Dyspnoea [Unknown]
  - Pruritus [Unknown]
  - Cough [Unknown]
